FAERS Safety Report 7901027-5 (Version None)
Quarter: 2011Q4

REPORT INFORMATION
  Report Type: 
  Country: None (occurrence: None)
  Receive Date: 20111108
  Receipt Date: 20111102
  Transmission Date: 20120403
  Serious: Yes (Other)
  Sender: FDA-Public Use
  Company Number: US-PFIZER INC-2005093086

PATIENT
  Sex: Female
  Weight: 57 kg

DRUGS (12)
  1. PACERONE [Concomitant]
     Indication: HEART RATE IRREGULAR
     Dosage: UNK
     Dates: start: 19950401
  2. ACETYLSALICYLIC ACID [Concomitant]
     Indication: THROMBOSIS
     Dosage: UNK
     Dates: start: 19950101, end: 20090101
  3. AZOPT [Concomitant]
     Indication: GLAUCOMA
     Dosage: UNK
     Dates: start: 19990101, end: 20040201
  4. COZAAR [Concomitant]
     Indication: CARDIAC DISORDER
     Dosage: UNK
     Dates: start: 19950101
  5. LEVOXYL [Concomitant]
     Indication: HYPOTHYROIDISM
     Dosage: UNK
     Dates: start: 19990101
  6. PROVERA [Suspect]
     Indication: HORMONE REPLACEMENT THERAPY
     Dosage: UNK
     Route: 048
     Dates: start: 19850401, end: 20011101
  7. ACETYLSALICYLIC ACID [Concomitant]
     Indication: ANTICOAGULANT THERAPY
  8. DEPO-PROVERA [Suspect]
     Indication: HORMONE REPLACEMENT THERAPY
     Dosage: 1ST INJECTION, UNKNOWN
     Dates: start: 19850401, end: 20010701
  9. PREMARIN [Suspect]
     Indication: HORMONE REPLACEMENT THERAPY
     Dosage: UNK
     Route: 048
     Dates: start: 19850401, end: 20011101
  10. DEPO-PROVERA [Suspect]
     Dosage: LAST INJECTION, UNKNOWN
     Route: 065
     Dates: start: 20010701, end: 20010701
  11. PREMARIN [Suspect]
     Indication: VULVOVAGINAL DRYNESS
     Dosage: UNK
     Route: 067
     Dates: start: 19970101, end: 19970101
  12. PREMPRO [Suspect]
     Indication: HORMONE REPLACEMENT THERAPY
     Dosage: UNK
     Route: 048
     Dates: start: 19960701, end: 19990201

REACTIONS (1)
  - BREAST CANCER FEMALE [None]
